FAERS Safety Report 6251375-2 (Version None)
Quarter: 2009Q2

REPORT INFORMATION
  Report Type: 
  Country: None (occurrence: None)
  Receive Date: 20090630
  Receipt Date: 20090629
  Transmission Date: 20091009
  Serious: Yes (Other)
  Sender: FDA-Public Use
  Company Number: B0579791A

PATIENT
  Sex: Female

DRUGS (6)
  1. AUGMENTIN '125' [Suspect]
     Indication: PROPHYLAXIS
     Dosage: 1G THREE TIMES PER DAY
     Route: 042
     Dates: start: 20090317, end: 20090318
  2. PROPACETAMOL [Suspect]
     Indication: PAIN
     Dosage: 2G FOUR TIMES PER DAY
     Route: 042
     Dates: start: 20090317, end: 20090318
  3. PROFENID [Suspect]
     Indication: PAIN
     Dosage: 1UNIT TWICE PER DAY
     Route: 042
     Dates: start: 20090317, end: 20090318
  4. OFLOXACIN [Suspect]
     Indication: PROPHYLAXIS
     Dosage: 200MG TWICE PER DAY
     Route: 042
     Dates: start: 20090317, end: 20090318
  5. LOVENOX [Concomitant]
     Indication: PROPHYLAXIS
     Route: 058
     Dates: start: 20090317, end: 20090318
  6. INTRAUTERINE CONTRACEPTIVE DEVICE [Concomitant]
     Indication: CONTRACEPTION
     Route: 065

REACTIONS (5)
  - INFUSION SITE PAIN [None]
  - INFUSION SITE THROMBOSIS [None]
  - OEDEMA PERIPHERAL [None]
  - PAIN IN EXTREMITY [None]
  - VENOUS THROMBOSIS [None]
